FAERS Safety Report 24224271 (Version 1)
Quarter: 2024Q3

REPORT INFORMATION
  Report Type: Spontaneous
  Country: US (occurrence: None)
  Receive Date: 20240818
  Receipt Date: 20240818
  Transmission Date: 20241017
  Serious: Yes (Hospitalization)
  Sender: Public
  Company Number: None

PATIENT
  Age: 46 Year
  Sex: Female
  Weight: 110.25 kg

DRUGS (16)
  1. DUPIXENT [Suspect]
     Active Substance: DUPILUMAB
     Indication: Eczema
     Dosage: 1 INJECTION EVERY 2 WEEKS SUBCUTANEOUS ?
     Route: 058
     Dates: start: 20240424, end: 20240729
  2. ELIQUIS [Suspect]
     Active Substance: APIXABAN
  3. Albuterol Inhaler [Concomitant]
  4. OZEMPIC [Concomitant]
     Active Substance: SEMAGLUTIDE
  5. BYSTOLIC [Concomitant]
  6. CRESTOR [Concomitant]
     Active Substance: ROSUVASTATIN CALCIUM
  7. OLMESARTAN [Concomitant]
  8. TRAZODONE [Concomitant]
  9. BUSPIRONE [Concomitant]
  10. CYMBALTA [Concomitant]
  11. MAXALT-MLT [Concomitant]
     Active Substance: RIZATRIPTAN BENZOATE
  12. GABAPENTIN [Concomitant]
  13. TYLENOL WITH CODEINE [Concomitant]
  14. TYLENOL [Concomitant]
  15. IBUPROFEN [Concomitant]
  16. Nexium [Concomitant]

REACTIONS (5)
  - Headache [None]
  - Nausea [None]
  - Cerebral venous thrombosis [None]
  - Subdural haemorrhage [None]
  - Therapy cessation [None]

NARRATIVE: CASE EVENT DATE: 20240807
